FAERS Safety Report 21557446 (Version 1)
Quarter: 2022Q4

REPORT INFORMATION
  Report Type: Spontaneous
  Country: CA (occurrence: CA)
  Receive Date: 20221105
  Receipt Date: 20221105
  Transmission Date: 20230113
  Serious: Yes (Other)
  Sender: FDA-Public Use
  Company Number: None

PATIENT
  Age: 74 Year
  Sex: Female

DRUGS (17)
  1. METHOTREXATE [Suspect]
     Active Substance: METHOTREXATE
     Indication: Product used for unknown indication
     Dosage: 1 EVERY 1 WEEKS
     Route: 065
  2. ASPIRIN [Concomitant]
     Active Substance: ASPIRIN
     Dosage: 1 EVERY 1 DAYS
  3. BISOPROLOL [Concomitant]
     Active Substance: BISOPROLOL
     Dosage: 1 EVERY 1 DAYS
  4. CETIRIZINE [Concomitant]
     Active Substance: CETIRIZINE HYDROCHLORIDE
  5. FLUTICASONE PROPIONATE [Concomitant]
     Active Substance: FLUTICASONE PROPIONATE
  6. FOLIC ACID [Concomitant]
     Active Substance: FOLIC ACID
  7. GLICLAZIDE [Concomitant]
     Active Substance: GLICLAZIDE
     Dosage: 1 EVERY 1 DAYS
  8. HYDROMORPHONE [Concomitant]
     Active Substance: HYDROMORPHONE
     Dosage: 2 EVERY 1 DAYS, SUSTAINED RELEASE
  9. HYDROMORPHONE HYDROCHLORIDE [Concomitant]
     Active Substance: HYDROMORPHONE HYDROCHLORIDE
  10. JANUVIA [Concomitant]
     Active Substance: SITAGLIPTIN PHOSPHATE
  11. MIRTAZAPINE [Concomitant]
     Active Substance: MIRTAZAPINE
     Dosage: 1 EVERY 1 DAYS
  12. RITUXIMAB [Concomitant]
     Active Substance: RITUXIMAB
  13. ROSUVASTATIN [Concomitant]
     Active Substance: ROSUVASTATIN
     Dosage: 1 EVERY 1 DAYS
  14. SPIRIVA [Concomitant]
     Active Substance: TIOTROPIUM BROMIDE MONOHYDRATE
     Dosage: EVERY 1 DAYS
  15. SPIRONOLACTONE [Concomitant]
     Active Substance: SPIRONOLACTONE
  16. CHOLECALCIFEROL [Concomitant]
     Active Substance: CHOLECALCIFEROL
  17. VITAMIN B12 [Concomitant]
     Active Substance: CYANOCOBALAMIN

REACTIONS (6)
  - Chronic obstructive pulmonary disease [Not Recovered/Not Resolved]
  - COVID-19 [Not Recovered/Not Resolved]
  - Joint swelling [Not Recovered/Not Resolved]
  - Lung neoplasm malignant [Not Recovered/Not Resolved]
  - Myocardial infarction [Not Recovered/Not Resolved]
  - Peripheral artery occlusion [Not Recovered/Not Resolved]
